FAERS Safety Report 8126330 (Version 2)
Quarter: 2013Q3

REPORT INFORMATION
  Report Type: Spontaneous
  Country: US (occurrence: US)
  Receive Date: 20110908
  Receipt Date: 20130918
  Transmission Date: 20140515
  Serious: Yes (Other)
  Sender: FDA-Public Use
  Company Number: US-ROCHE-799483

PATIENT
  Age: 60 Year
  Sex: Female

DRUGS (7)
  1. BONIVA [Suspect]
     Indication: OSTEOPOROSIS
     Route: 065
  2. BONIVA [Suspect]
     Route: 065
  3. BONIVA [Suspect]
     Route: 065
  4. FOSAMAX [Suspect]
     Indication: OSTEOPOROSIS
     Route: 065
  5. FOSAMAX [Suspect]
     Route: 065
  6. FOSAMAX [Suspect]
     Route: 065
  7. FOSAMAX [Suspect]
     Route: 065

REACTIONS (6)
  - Osteonecrosis of jaw [Unknown]
  - Anxiety [Unknown]
  - Emotional distress [Unknown]
  - Depression [Unknown]
  - Vulval ulceration [Unknown]
  - Calculus ureteric [Unknown]
